FAERS Safety Report 9001424 (Version 1)
Quarter: 2013Q1

REPORT INFORMATION
  Report Type: Spontaneous
  Country: US (occurrence: US)
  Receive Date: 20130107
  Receipt Date: 20130107
  Transmission Date: 20140127
  Serious: Yes (Hospitalization)
  Sender: FDA-Public Use
  Company Number: US-MERCK-1301USA002156

PATIENT
  Sex: Male

DRUGS (6)
  1. SINGULAIR [Suspect]
     Indication: ASTHMA
     Route: 048
  2. THEOLAIR [Suspect]
     Indication: SINUSITIS
  3. FORADIL [Suspect]
     Indication: GASTROOESOPHAGEAL REFLUX DISEASE
     Route: 055
  4. AXOTIDE [Suspect]
     Dosage: 250 MICROGRAM, UNK
     Route: 055
  5. NEXIUM [Concomitant]
     Dosage: 20 UNK, UNK
  6. RHINOCORT (BECLOMETHASONE DIPROPIONATE) [Concomitant]
     Route: 045

REACTIONS (4)
  - Skin atrophy [Unknown]
  - Muscle atrophy [Unknown]
  - Drug effect decreased [Unknown]
  - Asthma [Unknown]
